FAERS Safety Report 24719294 (Version 1)
Quarter: 2024Q4

REPORT INFORMATION
  Report Type: Spontaneous
  Country: JP (occurrence: JP)
  Receive Date: 20241210
  Receipt Date: 20241210
  Transmission Date: 20250115
  Serious: Yes (Death, Other)
  Sender: BOEHRINGER INGELHEIM
  Company Number: JP-NBI-2024-BI-067679

PATIENT
  Age: 6 Decade
  Sex: Female
  Weight: 52.4 kg

DRUGS (1)
  1. OFEV [Suspect]
     Active Substance: NINTEDANIB
     Indication: Pleuroparenchymal fibroelastosis
     Route: 048

REACTIONS (3)
  - Respiratory failure [Fatal]
  - Pneumothorax [Unknown]
  - Dyspnoea [Unknown]
